FAERS Safety Report 6539960-1 (Version None)
Quarter: 2010Q1

REPORT INFORMATION
  Report Type: 
  Country: None (occurrence: None)
  Receive Date: 20100111
  Receipt Date: 20100104
  Transmission Date: 20100710
  Serious: Yes (Other)
  Sender: FDA-Public Use
  Company Number: CIP10000015

PATIENT
  Age: 47 Year
  Sex: Female

DRUGS (4)
  1. ASACOL [Suspect]
     Indication: COLITIS ULCERATIVE
     Dosage: 400 MG, ORAL
     Route: 048
     Dates: start: 20091001
  2. CONTRACEPTIVES NOS [Concomitant]
  3. ALL OTHER THERAPEUTIC PRODUCTS [Concomitant]
  4. MULTIVITAMIN /00831701/ (VITAMINS NOS) [Concomitant]

REACTIONS (1)
  - CONVULSION [None]
